FAERS Safety Report 25347470 (Version 1)
Quarter: 2025Q2

REPORT INFORMATION
  Report Type: Spontaneous
  Country: US (occurrence: None)
  Receive Date: 20250522
  Receipt Date: 20250522
  Transmission Date: 20250717
  Serious: No
  Sender: FDA-CTU
  Company Number: None

PATIENT
  Age: 75 Year
  Sex: Male
  Weight: 79.4 kg

DRUGS (3)
  1. DARATUMUMAB\HYALURONIDASE-FIHJ [Suspect]
     Active Substance: DARATUMUMAB\HYALURONIDASE-FIHJ
  2. DEXAMETHASONE [Suspect]
     Active Substance: DEXAMETHASONE
  3. LENALIDOMIDE [Suspect]
     Active Substance: LENALIDOMIDE

REACTIONS (6)
  - White blood cell count decreased [None]
  - Neutrophil count decreased [None]
  - Lymphocyte count decreased [None]
  - Vision blurred [None]
  - Dizziness [None]
  - Blood pressure fluctuation [None]

NARRATIVE: CASE EVENT DATE: 20250520
